FAERS Safety Report 4299213-1 (Version None)
Quarter: 2004Q1

REPORT INFORMATION
  Report Type: 
  Country: None (occurrence: None)
  Receive Date: 20040217
  Receipt Date: 20040206
  Transmission Date: 20041129
  Serious: Yes (Hospitalization)
  Sender: FDA-Public Use
  Company Number: 03P-163-0244251-00

PATIENT
  Age: 47 Year
  Sex: Female
  Weight: 108.4097 kg

DRUGS (7)
  1. HUMIRA [Suspect]
     Indication: RHEUMATOID ARTHRITIS
     Dosage: 40 MG, 1 IN 2 WK, SUBCUTANEOUS
     Route: 058
     Dates: start: 20030317, end: 20031031
  2. METHOTREXATE [Concomitant]
  3. RISEDRONATE SODIUM [Concomitant]
  4. FOLIC ACID [Concomitant]
  5. CALCIUM [Concomitant]
  6. PROPACET 100 [Concomitant]
  7. METHYLPREDNISOLONE [Concomitant]

REACTIONS (2)
  - THROMBOSIS [None]
  - VASCULITIS [None]
